FAERS Safety Report 11055802 (Version 1)
Quarter: 2015Q2

REPORT INFORMATION
  Report Type: Spontaneous
  Country: CA (occurrence: CA)
  Receive Date: 20150422
  Receipt Date: 20150422
  Transmission Date: 20150821
  Serious: Yes (Disabling, Other)
  Sender: FDA-Public Use
  Company Number: CA-ASTRAZENECA-2015SE35417

PATIENT
  Age: 76 Year
  Sex: Female
  Weight: 68 kg

DRUGS (13)
  1. ELTROXIN [Concomitant]
     Active Substance: LEVOTHYROXINE
  2. ATENOLOL. [Concomitant]
     Active Substance: ATENOLOL
  3. AZITHROMYCIN [Concomitant]
     Active Substance: AZITHROMYCIN ANHYDROUS
  4. MICRO-K [Concomitant]
     Active Substance: POTASSIUM CHLORIDE
  5. SALBUTAMOL [Suspect]
     Active Substance: ALBUTEROL
     Route: 055
  6. NITRO [Concomitant]
     Active Substance: NITROGLYCERIN
  7. CEFUROXIME. [Concomitant]
     Active Substance: CEFUROXIME
  8. PULMICORT TURBUHALER [Suspect]
     Active Substance: BUDESONIDE
     Indication: DYSPNOEA
     Route: 055
  9. APO-LORAZEPAM [Concomitant]
  10. DOMPERIDONE [Concomitant]
     Active Substance: DOMPERIDONE
  11. HYDROCHLOROTHIAZIDE. [Concomitant]
     Active Substance: HYDROCHLOROTHIAZIDE
  12. ROSUVASTATIN [Concomitant]
     Active Substance: ROSUVASTATIN
  13. RAMIPRIL. [Concomitant]
     Active Substance: RAMIPRIL

REACTIONS (1)
  - Paralysis [Unknown]
